FAERS Safety Report 14582418 (Version 2)
Quarter: 2018Q1

REPORT INFORMATION
  Report Type: Spontaneous
  Country: IL (occurrence: IL)
  Receive Date: 20180228
  Receipt Date: 20180326
  Transmission Date: 20180509
  Serious: Yes (Other)
  Sender: FDA-Public Use
  Company Number: IL-CELGENEUS-ISR-20180206474

PATIENT
  Age: 26 Year
  Sex: Female
  Weight: 96 kg

DRUGS (3)
  1. OTEZLA [Suspect]
     Active Substance: APREMILAST
     Indication: PSORIASIS
     Dosage: FIRST DAY: 10 MILLIGRAM
     Route: 048
     Dates: start: 201802, end: 201802
  2. OTEZLA [Suspect]
     Active Substance: APREMILAST
     Dosage: THIRD DAY: 10MG+20MG
     Route: 048
     Dates: start: 201802, end: 201802
  3. OTEZLA [Suspect]
     Active Substance: APREMILAST
     Dosage: SECOND DAY: 10MG+10MG
     Route: 048
     Dates: start: 201802, end: 201802

REACTIONS (5)
  - Depression [Recovered/Resolved]
  - Major depression [Recovered/Resolved]
  - Depressed mood [Recovered/Resolved]
  - Crying [Recovered/Resolved]
  - Suicidal ideation [Recovered/Resolved]

NARRATIVE: CASE EVENT DATE: 201802
